FAERS Safety Report 9498666 (Version 2)
Quarter: 2013Q3

REPORT INFORMATION
  Report Type: Report from Study
  Country: DE (occurrence: DE)
  Receive Date: 20130904
  Receipt Date: 20130912
  Transmission Date: 20140515
  Serious: Yes (Hospitalization)
  Sender: FDA-Public Use
  Company Number: DE-ABBOTT-13P-062-1140465-00

PATIENT
  Sex: Female

DRUGS (1)
  1. HUMIRA [Suspect]
     Indication: PSORIASIS
     Route: 058
     Dates: start: 20121201, end: 20130626

REACTIONS (3)
  - Haemoglobin decreased [Recovering/Resolving]
  - Gastric haemorrhage [Recovering/Resolving]
  - Gastric ulcer [Not Recovered/Not Resolved]
